FAERS Safety Report 7804786-5 (Version None)
Quarter: 2011Q4

REPORT INFORMATION
  Report Type: 
  Country: None (occurrence: None)
  Receive Date: 20111010
  Receipt Date: 20111004
  Transmission Date: 20120403
  Serious: Yes (Other)
  Sender: FDA-Public Use
  Company Number: IT-CELGENEUS-083-21880-11091818

PATIENT
  Sex: Male

DRUGS (10)
  1. SINESTIC [Concomitant]
     Route: 065
  2. CALCIUM SANDOZ [Concomitant]
     Dosage: 250 MILLIGRAM
     Route: 065
  3. GARDENALE [Concomitant]
     Route: 065
  4. PREDNISONE [Suspect]
     Indication: MULTIPLE MYELOMA
     Route: 065
     Dates: end: 20060430
  5. SPIRIVA [Concomitant]
     Route: 065
  6. RAMIPRIL [Concomitant]
     Route: 065
  7. ASPIRIN [Concomitant]
     Dosage: 1 DOSAGE FORMS
     Route: 065
  8. REVLIMID [Suspect]
     Indication: MULTIPLE MYELOMA
     Dosage: 10 MILLIGRAM
     Route: 048
     Dates: start: 20060504
  9. MELPHALAN HYDROCHLORIDE [Suspect]
     Indication: MULTIPLE MYELOMA
     Route: 065
     Dates: end: 20060430
  10. MEPRAL [Concomitant]
     Dosage: 1 DOSAGE FORMS
     Route: 065

REACTIONS (1)
  - BLADDER CANCER [None]
